FAERS Safety Report 10399063 (Version 1)
Quarter: 2014Q1

REPORT INFORMATION
  Report Type: Spontaneous
  Country: US (occurrence: None)
  Receive Date: 20130815
  Receipt Date: 20130815
  Transmission Date: 20141002
  Serious: No
  Sender: FDA-Public Use
  Company Number: ADR-2013-00767

PATIENT
  Sex: Female

DRUGS (1)
  1. BACLOFEN INTRATHECAL [Suspect]
     Indication: MUSCLE SPASTICITY

REACTIONS (5)
  - Peroneal nerve palsy [None]
  - Muscle spasticity [None]
  - Performance status decreased [None]
  - Muscular weakness [None]
  - Medical device discomfort [None]
